FAERS Safety Report 12297961 (Version 2)
Quarter: 2016Q2

REPORT INFORMATION
  Report Type: Report from Study
  Country: US (occurrence: US)
  Receive Date: 20160422
  Receipt Date: 20160510
  Transmission Date: 20160815
  Serious: Yes (Death, Life-Threatening)
  Sender: FDA-Public Use
  Company Number: US-ACTELION-A-US2016-131240

PATIENT
  Age: 57 Year
  Sex: Male

DRUGS (2)
  1. ADCIRCA [Concomitant]
     Active Substance: TADALAFIL
  2. MACITENTAN [Suspect]
     Active Substance: MACITENTAN
     Indication: PULMONARY HYPERTENSION
     Dosage: 10 MG, QD
     Route: 048
     Dates: start: 20150630, end: 20160313

REACTIONS (14)
  - Pulmonary arterial hypertension [Fatal]
  - Emphysema [Fatal]
  - Resuscitation [Unknown]
  - Dyspnoea [Unknown]
  - Nasopharyngitis [Unknown]
  - Cardiac disorder [Unknown]
  - Lung disorder [Unknown]
  - Disease progression [Fatal]
  - Dyspnoea exertional [Unknown]
  - Coma [Unknown]
  - Myocardial infarction [Unknown]
  - Feeling hot [Unknown]
  - Anxiety [Unknown]
  - Pulmonary fibrosis [Fatal]

NARRATIVE: CASE EVENT DATE: 2016
